FAERS Safety Report 9737033 (Version 1)
Quarter: 2013Q4

REPORT INFORMATION
  Report Type: Spontaneous
  Country: US (occurrence: US)
  Receive Date: 20131206
  Receipt Date: 20131206
  Transmission Date: 20140711
  Serious: No
  Sender: FDA-Public Use
  Company Number: US-GILEAD-2009-0024187

PATIENT
  Age: 79 Year
  Sex: Male

DRUGS (12)
  1. LETAIRIS [Suspect]
     Indication: COR PULMONALE CHRONIC
     Route: 048
     Dates: start: 20090511, end: 20090820
  2. VIAGRA [Concomitant]
  3. PREDNISONE [Concomitant]
  4. COLCHICINE [Concomitant]
  5. LIPITOR [Concomitant]
  6. LISINOPRIL [Concomitant]
  7. FUROSEMIDE [Concomitant]
  8. PLAQUENIL [Concomitant]
  9. PROTONIX [Concomitant]
  10. ALLOPURINOL [Concomitant]
  11. ASPIRIN [Concomitant]
  12. POTASSIUM [Concomitant]

REACTIONS (3)
  - Oedema peripheral [Recovered/Resolved]
  - Rash [Recovered/Resolved]
  - Dyspnoea [Recovering/Resolving]
